FAERS Safety Report 4412570-8 (Version None)
Quarter: 2004Q2

REPORT INFORMATION
  Report Type: 
  Country: None (occurrence: None)
  Receive Date: 20040630
  Receipt Date: 20040305
  Transmission Date: 20050107
  Serious: No
  Sender: FDA-Public Use
  Company Number: 04P-163-0252557-00

PATIENT
  Age: 58 Year
  Sex: Female

DRUGS (15)
  1. HUMIRA [Suspect]
     Indication: RHEUMATOID ARTHRITIS
     Dosage: 40 MG, 1 IN 2 WK, SUBCUTANEOUS
     Route: 058
     Dates: start: 20030620
  2. TOPIRMATE [Concomitant]
  3. LISINOPRIL [Concomitant]
  4. FOLIC ACID [Concomitant]
  5. FLUOXETINE HCL [Concomitant]
  6. BUPROPION HYDROCHLORIDE [Concomitant]
  7. CYCLOBENZAPRINE HCL [Concomitant]
  8. ZOLPIDEM TARTRATE [Concomitant]
  9. METHOTREXATE [Concomitant]
  10. PANTOPRAZOLE [Concomitant]
  11. PREDNISONE [Concomitant]
  12. HYDROCODONE [Concomitant]
  13. ESTRADIOL [Concomitant]
  14. GABAPENTIN [Concomitant]
  15. TRAZODONE [Concomitant]

REACTIONS (1)
  - INJECTION SITE HAEMORRHAGE [None]
